FAERS Safety Report 6206618-8 (Version None)
Quarter: 2009Q2

REPORT INFORMATION
  Report Type: 
  Country: None (occurrence: None)
  Receive Date: 20090528
  Receipt Date: 20090522
  Transmission Date: 20091009
  Serious: Yes (Other)
  Sender: FDA-Public Use
  Company Number: US-JNJFOC-20090505710

PATIENT
  Sex: Female
  Weight: 68.04 kg

DRUGS (7)
  1. FENTANYL TRANSDERMAL SYSTEM [Suspect]
     Indication: ARTHRITIS
     Route: 062
  2. TRAMADOL HCL [Concomitant]
     Indication: PAIN
     Route: 048
  3. MIRAPEX [Concomitant]
     Indication: RESTLESS LEGS SYNDROME
     Dosage: 1MG/TABLET/.6MG/2 AT NIGHT/ORAL
     Route: 048
  4. ETODOLAC [Concomitant]
     Route: 048
  5. OMEPRAZOLE [Concomitant]
     Indication: GASTRIC DISORDER
     Route: 048
  6. FUROSEMIDE [Concomitant]
     Indication: FLUID RETENTION
     Route: 048
  7. PREDNISOLONE [Concomitant]
     Indication: PAIN
     Route: 048

REACTIONS (7)
  - DRUG ADMINISTERED AT INAPPROPRIATE SITE [None]
  - FATIGUE [None]
  - PAIN [None]
  - PRODUCT QUALITY ISSUE [None]
  - THROMBOSIS [None]
  - TREMOR [None]
  - WITHDRAWAL SYNDROME [None]
